FAERS Safety Report 4318888-1 (Version None)
Quarter: 2004Q1

REPORT INFORMATION
  Report Type: 
  Country: None (occurrence: None)
  Receive Date: 20040318
  Receipt Date: 20040309
  Transmission Date: 20041129
  Serious: Yes (Other)
  Sender: FDA-Public Use
  Company Number: US-ROCHE-361384

PATIENT
  Age: 22 Year
  Sex: Female

DRUGS (2)
  1. ACCUTANE [Suspect]
     Indication: DRUG USE FOR UNKNOWN INDICATION
     Route: 065
     Dates: start: 20030115, end: 20030415
  2. ORAL CONTRACEPTIVE PILL [Concomitant]
     Indication: CONTRACEPTION
     Route: 065
     Dates: start: 20021115, end: 20030415

REACTIONS (1)
  - ECTOPIC PREGNANCY [None]
